FAERS Safety Report 13525503 (Version 2)
Quarter: 2017Q2

REPORT INFORMATION
  Report Type: Spontaneous
  Country: US (occurrence: US)
  Receive Date: 20170508
  Receipt Date: 20170622
  Transmission Date: 20170830
  Serious: Yes (Death)
  Sender: FDA-Public Use
  Company Number: US-ALKERMES INC.-ALK-2017-001753

PATIENT
  Age: 39 Year
  Sex: Male
  Weight: 99.77 kg

DRUGS (1)
  1. VIVITROL [Suspect]
     Active Substance: NALTREXONE
     Indication: DRUG USE DISORDER
     Dosage: 380 MG, QMO
     Route: 030
     Dates: start: 20150615, end: 20161227

REACTIONS (2)
  - Drug use disorder [None]
  - Overdose [Fatal]

NARRATIVE: CASE EVENT DATE: 20170322
